FAERS Safety Report 4802832-4 (Version None)
Quarter: 2005Q4

REPORT INFORMATION
  Report Type: 
  Country: None (occurrence: None)
  Receive Date: 20051019
  Receipt Date: 20051012
  Transmission Date: 20060501
  Serious: Yes (Other)
  Sender: FDA-Public Use
  Company Number: 2005UW15355

PATIENT
  Age: 51 Year
  Sex: Male

DRUGS (6)
  1. SEROQUEL [Suspect]
     Route: 048
     Dates: start: 20050701
  2. SEROQUEL [Suspect]
     Route: 048
  3. RISPERDAL [Concomitant]
  4. VALPROIC ACID [Concomitant]
  5. FLOMAX [Concomitant]
  6. COGENTIN [Concomitant]

REACTIONS (3)
  - ASTHENIA [None]
  - COMA [None]
  - UNRESPONSIVE TO VERBAL STIMULI [None]
